FAERS Safety Report 20528750 (Version 1)
Quarter: 2022Q1

REPORT INFORMATION
  Report Type: Spontaneous
  Country: KR (occurrence: KR)
  Receive Date: 20220228
  Receipt Date: 20220228
  Transmission Date: 20220423
  Serious: Yes (Other)
  Sender: FDA-Public Use
  Company Number: KR-NOVARTISPH-NVSC2022KR042375

PATIENT
  Age: 10 Month
  Sex: Female

DRUGS (1)
  1. EVEROLIMUS [Suspect]
     Active Substance: EVEROLIMUS
     Indication: Tuberous sclerosis complex associated neuropsychiatric disease
     Dosage: 1.5 MG, QD
     Route: 048

REACTIONS (4)
  - Pneumonia viral [Recovered/Resolved]
  - Chronic sinusitis [Recovered/Resolved]
  - Mouth ulceration [Recovered/Resolved]
  - Product use issue [Unknown]
